FAERS Safety Report 6822291-X (Version None)
Quarter: 2010Q3

REPORT INFORMATION
  Report Type: 
  Country: None (occurrence: None)
  Receive Date: 20100707
  Receipt Date: 20100707
  Transmission Date: 20110219
  Serious: No
  Sender: FDA-Public Use
  Company Number: None

PATIENT
  Age: 23 Year
  Sex: Female
  Weight: 53.5244 kg

DRUGS (1)
  1. DEPAKOTE [Suspect]
     Indication: AFFECTIVE DISORDER
     Dosage: 500MG ONCE DAILY PO
     Route: 048
     Dates: start: 20080208, end: 20100524

REACTIONS (7)
  - DROOLING [None]
  - EXTRAPYRAMIDAL DISORDER [None]
  - LETHARGY [None]
  - PARADOXICAL DRUG REACTION [None]
  - SUICIDE ATTEMPT [None]
  - TARDIVE DYSKINESIA [None]
  - TRAUMATIC BRAIN INJURY [None]
